FAERS Safety Report 7985100-1 (Version None)
Quarter: 2011Q4

REPORT INFORMATION
  Report Type: 
  Country: None (occurrence: None)
  Receive Date: 20111216
  Receipt Date: 20111212
  Transmission Date: 20120403
  Serious: No
  Sender: FDA-Public Use
  Company Number: PHEH2011US011466

PATIENT
  Age: 83 Year
  Sex: Female

DRUGS (7)
  1. OXYBUTYNIN [Concomitant]
     Dosage: 5 MG, DAILY
  2. CENTRUM SILVER [Concomitant]
  3. DIOVAN [Concomitant]
     Dosage: 80 MG, DAILY
  4. OSCAL 500-D [Concomitant]
  5. TASIGNA [Suspect]
     Dosage: 150 MG,  X 4 DAILY
     Route: 048
  6. CLARITIN [Concomitant]
  7. CITRICAL [Concomitant]

REACTIONS (5)
  - INSOMNIA [None]
  - EAR PAIN [None]
  - PYREXIA [None]
  - PAIN IN EXTREMITY [None]
  - COUGH [None]
